FAERS Safety Report 20580046 (Version 1)
Quarter: 2022Q1

REPORT INFORMATION
  Report Type: Other
  Country: IT (occurrence: None)
  Receive Date: 20220310
  Receipt Date: 20220310
  Transmission Date: 20220423
  Serious: No
  Sender: FDA-Public Use
  Company Number: IT-ROCHE-3043443

PATIENT
  Age: 32 Year
  Sex: Female
  Weight: 75 kg

DRUGS (12)
  1. OCRELIZUMAB [Suspect]
     Active Substance: OCRELIZUMAB
     Indication: Primary progressive multiple sclerosis
     Route: 042
     Dates: start: 20200124
  2. CISTIDIL [Concomitant]
     Indication: Adverse event
     Route: 048
     Dates: start: 20210403
  3. AZITHROMYCIN DIHYDRATE [Concomitant]
     Active Substance: AZITHROMYCIN DIHYDRATE
     Indication: Adverse event
     Route: 048
     Dates: start: 20211231, end: 20220105
  4. FLUIMUCIL [Concomitant]
     Active Substance: ACETYLCYSTEINE
     Indication: Adverse event
     Route: 048
     Dates: start: 20211231, end: 20220115
  5. IBUPROFEN [Concomitant]
     Active Substance: IBUPROFEN
     Indication: Adverse event
     Route: 048
     Dates: start: 20220102, end: 20220106
  6. DAFLON [Concomitant]
     Route: 048
     Dates: start: 20220118
  7. ACETAMINOPHEN [Concomitant]
     Active Substance: ACETAMINOPHEN
     Route: 048
     Dates: start: 20220218, end: 20220218
  8. OMEPRAZOLE [Concomitant]
     Active Substance: OMEPRAZOLE
     Route: 048
     Dates: start: 20220218, end: 20220218
  9. METHYLPREDNISOLONE [Concomitant]
     Active Substance: METHYLPREDNISOLONE
     Route: 042
     Dates: start: 20220218, end: 20220218
  10. TRIMETON IV [Concomitant]
     Route: 030
     Dates: start: 20220218, end: 20220218
  11. CETIRIZINE HYDROCHLORIDE [Concomitant]
     Active Substance: CETIRIZINE HYDROCHLORIDE
     Indication: Adverse event
     Route: 048
     Dates: start: 20220218, end: 20220218
  12. DEXAMETHASONE [Concomitant]
     Active Substance: DEXAMETHASONE
     Indication: Adverse event
     Route: 042
     Dates: start: 20220218, end: 20220218

REACTIONS (2)
  - COVID-19 [Recovered/Resolved]
  - Raynaud^s phenomenon [Recovering/Resolving]

NARRATIVE: CASE EVENT DATE: 20211201
